FAERS Safety Report 6852354-4 (Version None)
Quarter: 2010Q3

REPORT INFORMATION
  Report Type: 
  Country: None (occurrence: None)
  Receive Date: 20100717
  Receipt Date: 20071115
  Transmission Date: 20110219
  Serious: No
  Sender: FDA-Public Use
  Company Number: US-PFIZER INC-2007096898

PATIENT
  Sex: Female
  Weight: 65 kg

DRUGS (9)
  1. CHANTIX [Suspect]
     Indication: SMOKING CESSATION THERAPY
     Dates: start: 20070704, end: 20071016
  2. NEURONTIN [Concomitant]
  3. CYMBALTA [Concomitant]
  4. RITALIN [Concomitant]
  5. XANAX [Concomitant]
  6. NEXIUM [Concomitant]
  7. PREMARIN [Concomitant]
  8. ANALGESICS [Concomitant]
     Indication: PAIN
  9. CARAFATE [Concomitant]
     Indication: GASTRIC DISORDER

REACTIONS (2)
  - MALAISE [None]
  - NAUSEA [None]
